FAERS Safety Report 9448930 (Version 1)
Quarter: 2013Q3

REPORT INFORMATION
  Report Type: Spontaneous
  Country: TR (occurrence: None)
  Receive Date: 20130806
  Receipt Date: 20130806
  Transmission Date: 20140515
  Serious: Yes (Hospitalization)
  Sender: FDA-Public Use
  Company Number: TR-ACCORD-018726

PATIENT
  Age: 28 Year
  Sex: Male

DRUGS (5)
  1. MYCOPHENOLATE MOFETIL [Suspect]
     Indication: IMMUNOSUPPRESSION
  2. COLCHICINE [Concomitant]
  3. TACROLIMUS [Concomitant]
  4. DELTACORTRIL [Concomitant]
  5. L-THYROXINE [Concomitant]

REACTIONS (15)
  - Posterior reversible encephalopathy syndrome [None]
  - Blood pressure systolic increased [None]
  - Blood sodium decreased [None]
  - Platelet count increased [None]
  - Haemoglobin decreased [None]
  - Vomiting [None]
  - Diarrhoea [None]
  - Gastritis [None]
  - Reflux gastritis [None]
  - Gastrointestinal oedema [None]
  - Blood creatine phosphokinase increased [None]
  - Toxicity to various agents [None]
  - Gastroenteritis [None]
  - Alanine aminotransferase increased [None]
  - Aspartate aminotransferase increased [None]
